FAERS Safety Report 15567207 (Version 2)
Quarter: 2018Q4

REPORT INFORMATION
  Report Type: Report from Study
  Country: CA (occurrence: CA)
  Receive Date: 20181030
  Receipt Date: 20181220
  Transmission Date: 20190205
  Serious: Yes (Death, Hospitalization, Other)
  Sender: FDA-Public Use
  Company Number: CA-TAIHO ONCOLOGY  INC-EU-2018-01632

PATIENT
  Age: 79 Year
  Sex: Male
  Weight: 69 kg

DRUGS (1)
  1. LONSURF [Suspect]
     Active Substance: TIPIRACIL HYDROCHLORIDE\TRIFLURIDINE
     Indication: COLORECTAL CANCER METASTATIC
     Dosage: CYCLE 3 STARTED ON 06/SEP/2018
     Route: 048
     Dates: start: 20180712, end: 20181003

REACTIONS (3)
  - Disease progression [Fatal]
  - Femur fracture [Not Recovered/Not Resolved]
  - Fall [Recovered/Resolved]

NARRATIVE: CASE EVENT DATE: 20181001
